FAERS Safety Report 20613329 (Version 1)
Quarter: 2022Q1

REPORT INFORMATION
  Report Type: Other
  Country: US (occurrence: US)
  Receive Date: 20220318
  Receipt Date: 20220318
  Transmission Date: 20220423
  Serious: No
  Sender: FDA-Public Use
  Company Number: US-SEPTODONT-2021006610

PATIENT
  Age: 35 Year
  Sex: Male

DRUGS (2)
  1. SEPTOCAINE AND EPINEPHRINE [Suspect]
     Active Substance: ARTICAINE HYDROCHLORIDE\EPINEPHRINE BITARTRATE
     Dosage: 1.7 CC
     Route: 004
  2. 2% xylocaine with 1:100,000 epinephrine [Concomitant]
     Dosage: 1.7 CC
     Route: 004

REACTIONS (1)
  - Drug ineffective [Recovered/Resolved]
